FAERS Safety Report 12111430 (Version 2)
Quarter: 2016Q2

REPORT INFORMATION
  Report Type: Report from Study
  Country: US (occurrence: US)
  Receive Date: 20160224
  Receipt Date: 20160531
  Transmission Date: 20160815
  Serious: Yes (Hospitalization, Other)
  Sender: FDA-Public Use
  Company Number: US-ABBVIE-16K-163-1547461-00

PATIENT
  Age: 69 Year
  Sex: Male

DRUGS (1)
  1. HUMIRA [Suspect]
     Active Substance: ADALIMUMAB
     Indication: CROHN^S DISEASE
     Route: 058
     Dates: start: 20151226

REACTIONS (12)
  - Rash pustular [Not Recovered/Not Resolved]
  - Mucosal discolouration [Not Recovered/Not Resolved]
  - Staphylococcal infection [Recovered/Resolved]
  - Small intestinal obstruction [Recovered/Resolved]
  - Skin exfoliation [Not Recovered/Not Resolved]
  - Thrombosis [Recovered/Resolved]
  - Large intestine perforation [Recovering/Resolving]
  - Oesophageal haemorrhage [Recovered/Resolved]
  - Pulmonary thrombosis [Recovered/Resolved]
  - Large intestinal obstruction [Recovering/Resolving]
  - Skin swelling [Not Recovered/Not Resolved]
  - Pneumonia [Recovered/Resolved]

NARRATIVE: CASE EVENT DATE: 201601
